FAERS Safety Report 12213788 (Version 1)
Quarter: 2016Q1

REPORT INFORMATION
  Report Type: Spontaneous
  Country: US (occurrence: None)
  Receive Date: 20160325
  Receipt Date: 20160325
  Transmission Date: 20160526
  Serious: Yes (Hospitalization)
  Sender: FDA-Public Use
  Company Number: None

PATIENT
  Age: 64 Year
  Sex: Male
  Weight: 79.4 kg

DRUGS (25)
  1. DOXORUBICIN HYDROCHLORIDE. [Suspect]
     Active Substance: DOXORUBICIN HYDROCHLORIDE
     Dates: end: 20160211
  2. HUMALOG [Concomitant]
     Active Substance: INSULIN LISPRO
  3. VENLAFAZINE [Concomitant]
  4. ALLOPURINOL. [Concomitant]
     Active Substance: ALLOPURINOL
  5. TRAZODONE [Concomitant]
     Active Substance: TRAZODONE HYDROCHLORIDE
  6. LEVOTHYROXINE SODIUM. [Concomitant]
     Active Substance: LEVOTHYROXINE SODIUM
  7. LISINOPRIL. [Concomitant]
     Active Substance: LISINOPRIL
  8. LOVENOX [Concomitant]
     Active Substance: ENOXAPARIN SODIUM
  9. OXYCODONE [Concomitant]
     Active Substance: OXYCODONE
  10. METAMUCIL [Concomitant]
     Active Substance: PLANTAGO SEED
  11. SODIUM CHLORIDE. [Concomitant]
     Active Substance: SODIUM CHLORIDE
  12. BENADRYL [Concomitant]
     Active Substance: DIPHENHYDRAMINE HYDROCHLORIDE
  13. DULCOLAX NOS [Concomitant]
     Active Substance: BISACODYL OR DOCUSATE SODIUM
  14. INVANZ [Concomitant]
     Active Substance: ERTAPENEM SODIUM
  15. COLLAGENASE SANTYL [Concomitant]
     Active Substance: COLLAGENASE CLOSTRIDIUM HISTOLYTICUM
  16. ZOFRAN [Concomitant]
     Active Substance: ONDANSETRON HYDROCHLORIDE
  17. RITUXIMAB (MOAB C2B8 ANTI CD20, CHIMERIC) [Suspect]
     Active Substance: RITUXIMAB
     Dates: end: 20160211
  18. DIBETA [Concomitant]
     Active Substance: DICLOFENAC SODIUM
  19. METFORMIN [Concomitant]
     Active Substance: METFORMIN HYDROCHLORIDE
  20. CYCLOPHOSPHAMIDE. [Suspect]
     Active Substance: CYCLOPHOSPHAMIDE
     Dates: end: 20160211
  21. FENOFIBRIC ACID, CHOLINE [Concomitant]
  22. LIPITOR [Concomitant]
     Active Substance: ATORVASTATIN CALCIUM
  23. NEURONTIN [Concomitant]
     Active Substance: GABAPENTIN
  24. ROBAXIN [Concomitant]
     Active Substance: METHOCARBAMOL
  25. PLAVIX [Concomitant]
     Active Substance: CLOPIDOGREL BISULFATE

REACTIONS (5)
  - Infection [None]
  - Anaemia [None]
  - Sepsis [None]
  - Hypotension [None]
  - Decubitus ulcer [None]

NARRATIVE: CASE EVENT DATE: 20160225
